FAERS Safety Report 13288035 (Version 1)
Quarter: 2017Q1

REPORT INFORMATION
  Report Type: Spontaneous
  Country: DE (occurrence: DE)
  Receive Date: 20170302
  Receipt Date: 20170302
  Transmission Date: 20170428
  Serious: Yes (Other)
  Sender: FDA-Public Use
  Company Number: DE-ALLERGAN-1677919US

PATIENT
  Age: 77 Year
  Sex: Male

DRUGS (1)
  1. OZURDEX [Suspect]
     Active Substance: DEXAMETHASONE
     Indication: DIABETIC RETINAL OEDEMA
     Dosage: 0.7 MG, SINGLE
     Route: 031
     Dates: start: 20151210, end: 20151210

REACTIONS (3)
  - Cataract [Unknown]
  - Migration of implanted drug [Unknown]
  - Absorbable device issue [Unknown]

NARRATIVE: CASE EVENT DATE: 201607
